FAERS Safety Report 7487430-9 (Version None)
Quarter: 2011Q2

REPORT INFORMATION
  Report Type: 
  Country: None (occurrence: None)
  Receive Date: 20110510
  Receipt Date: 20110425
  Transmission Date: 20111010
  Serious: Yes (Hospitalization, Other)
  Sender: FDA-Public Use
  Company Number: JP-2011-10587

PATIENT
  Age: 68 Year
  Sex: Female
  Weight: 32 kg

DRUGS (10)
  1. SAMSCA [Suspect]
     Indication: CARDIAC FAILURE CONGESTIVE
     Dosage: 7.5 MG MILLIGRAM(S), QOD, ORAL
     Route: 048
     Dates: start: 20110214, end: 20110218
  2. SAMSCA [Suspect]
     Indication: CARDIAC FAILURE CONGESTIVE
     Dosage: 7.5 MG MILLIGRAM(S), QOD, ORAL
     Route: 048
     Dates: start: 20110221, end: 20110325
  3. DIART (AZOSEMIDE) TABLET [Concomitant]
  4. LASIX [Concomitant]
  5. CARVEDILOL [Concomitant]
  6. ITOROL (ISOSORBIDE MONONITRATE) TABLET [Concomitant]
  7. WARFARIN (WARFARIN POTASSIUM) TABLET [Concomitant]
  8. PIMOBENDAN (PIMOBENDAN) TABLET [Concomitant]
  9. ENALAPRIL MALEATE [Concomitant]
  10. ALDACTONE [Concomitant]

REACTIONS (11)
  - DEHYDRATION [None]
  - THIRST [None]
  - DECREASED APPETITE [None]
  - CIRCULATORY COLLAPSE [None]
  - BLOOD UREA INCREASED [None]
  - ASTHENIA [None]
  - DYSPNOEA EXERTIONAL [None]
  - PALPITATIONS [None]
  - HYPOTENSION [None]
  - ARRHYTHMIA [None]
  - BLOOD CREATININE INCREASED [None]
